FAERS Safety Report 6439483-4 (Version None)
Quarter: 2009Q4

REPORT INFORMATION
  Report Type: 
  Country: None (occurrence: None)
  Receive Date: 20091113
  Receipt Date: 20091103
  Transmission Date: 20100525
  Serious: Yes (Other)
  Sender: FDA-Public Use
  Company Number: DE-JNJFOC-20091101037

PATIENT
  Sex: Male
  Weight: 63 kg

DRUGS (1)
  1. CONCERTA [Suspect]
     Indication: DRUG USE FOR UNKNOWN INDICATION
     Route: 048
     Dates: start: 20091103, end: 20091103

REACTIONS (4)
  - ACCIDENTAL EXPOSURE [None]
  - AGITATION [None]
  - ATAXIA [None]
  - TREMOR [None]
